FAERS Safety Report 5644324-9 (Version None)
Quarter: 2008Q1

REPORT INFORMATION
  Report Type: 
  Country: None (occurrence: None)
  Receive Date: 20080229
  Receipt Date: 20080220
  Transmission Date: 20080703
  Serious: Yes (Hospitalization)
  Sender: FDA-Public Use
  Company Number: PHHO2007US18058

PATIENT
  Age: 49 Year
  Sex: Female
  Weight: 69.8 kg

DRUGS (7)
  1. CERTICAN [Suspect]
     Indication: RENAL TRANSPLANT
     Dosage: 1 MG, BID
     Route: 048
     Dates: start: 20060623
  2. NEORAL [Suspect]
     Indication: RENAL TRANSPLANT
     Dosage: 75 MG DAILY
     Route: 048
     Dates: start: 20070321
  3. PREDNISONE TAB [Concomitant]
     Indication: RENAL TRANSPLANT
     Dosage: 2.5 MG DAILY
     Route: 048
     Dates: start: 20060906
  4. OXYCODONE HCL [Concomitant]
  5. MS CONTIN [Concomitant]
  6. CHI 621 [Suspect]
     Dosage: 20 MG, DAY 0
     Route: 042
     Dates: start: 20060623, end: 20060623
  7. CHI 621 [Suspect]
     Dosage: 20 MG, DAY 4
     Route: 048
     Dates: start: 20060627, end: 20060627

REACTIONS (10)
  - ACIDOSIS [None]
  - BLOOD CREATININE INCREASED [None]
  - HYPERKALAEMIA [None]
  - HYPOTENSION [None]
  - MENTAL STATUS CHANGES [None]
  - OVERDOSE [None]
  - RENAL FAILURE ACUTE [None]
  - RESPIRATORY DEPRESSION [None]
  - SOMNOLENCE [None]
  - URINARY TRACT INFECTION [None]
